FAERS Safety Report 9547443 (Version 2)
Quarter: 2013Q4

REPORT INFORMATION
  Report Type: Spontaneous
  Country: US (occurrence: None)
  Receive Date: 20130919
  Receipt Date: 20131015
  Transmission Date: 20140711
  Serious: Yes (Hospitalization)
  Sender: FDA-Public Use
  Company Number: UTC-037475

PATIENT
  Age: 84 Year
  Sex: Female
  Weight: 48.2 kg

DRUGS (1)
  1. TYVASO [Suspect]
     Indication: PULMONARY ARTERIAL HYPERTENSION
     Dosage: 18 TO 54 MCG (4 IN 1
     Route: 055
     Dates: start: 20130610

REACTIONS (10)
  - Feeling abnormal [None]
  - Dyspnoea [None]
  - Cardiac failure congestive [None]
  - Dizziness [None]
  - Headache [None]
  - Balance disorder [None]
  - Epistaxis [None]
  - Tongue discolouration [None]
  - Throat tightness [None]
  - Tremor [None]
